FAERS Safety Report 6087561-4 (Version None)
Quarter: 2009Q1

REPORT INFORMATION
  Report Type: 
  Country: None (occurrence: None)
  Receive Date: 20090223
  Receipt Date: 20090220
  Transmission Date: 20090719
  Serious: Yes (Death, Other)
  Sender: FDA-Public Use
  Company Number: PHHY2008GB32066

PATIENT
  Sex: Female

DRUGS (2)
  1. CLOZARIL [Suspect]
     Indication: SCHIZOPHRENIA
     Dosage: UNK
     Dates: start: 20070205
  2. SULPIRIDE [Concomitant]
     Dosage: 600 MG DAILY
     Route: 048

REACTIONS (2)
  - LIVER DISORDER [None]
  - SALIVARY HYPERSECRETION [None]
